FAERS Safety Report 8289536-3 (Version None)
Quarter: 2012Q2

REPORT INFORMATION
  Report Type: 
  Country: None (occurrence: None)
  Receive Date: 20120417
  Receipt Date: 20120409
  Transmission Date: 20120825
  Serious: Yes (Other)
  Sender: FDA-Public Use
  Company Number: US-US-EMD SERONO, INC.-7001160

PATIENT
  Sex: Female
  Weight: 98 kg

DRUGS (6)
  1. LIPITOR [Concomitant]
     Indication: BLOOD CHOLESTEROL INCREASED
     Route: 048
  2. UNSPECIFIED THYROID MEDICATION [Concomitant]
     Indication: THYROID DISORDER
  3. REBIF [Suspect]
     Indication: MULTIPLE SCLEROSIS
     Dates: start: 20100308
  4. ZOLOFT [Concomitant]
     Indication: ANXIETY DISORDER
     Route: 048
  5. REBIF [Suspect]
     Route: 058
     Dates: start: 20100823
  6. BOTRAX [Concomitant]
     Indication: INFECTION TRANSMISSION VIA PERSONAL CONTACT

REACTIONS (7)
  - CARDIOMEGALY [None]
  - INJECTION SITE HAEMATOMA [None]
  - PULMONARY HYPERTENSION [None]
  - SUICIDAL IDEATION [None]
  - HYPOAESTHESIA [None]
  - PAIN [None]
  - FATIGUE [None]
